FAERS Safety Report 4761145-X (Version None)
Quarter: 2005Q3

REPORT INFORMATION
  Report Type: 
  Country: None (occurrence: None)
  Receive Date: 20050901
  Receipt Date: 20050819
  Transmission Date: 20060218
  Serious: Yes (Other)
  Sender: FDA-Public Use
  Company Number: 2005117546

PATIENT
  Age: 80 Year
  Sex: Female
  Weight: 80.7403 kg

DRUGS (6)
  1. LUBRIDERM DAILY MOISTURE WITH  SPF 15 (OXYBENZONE, ETHYLHEXYL [Suspect]
     Dosage: TOPICAL
     Route: 061
  2. LUBRIDERM SKIN NOURISHING WITH OAT EXTRACT (NO ACTIVE INGREDIENT) [Suspect]
     Indication: DRY SKIN
     Dosage: 4-5 PUMPS TWICE A DAY, TOPICAL
     Route: 061
     Dates: start: 20040101
  3. LUBRIDERM SKIN NOURISHING (NO ACTIVE INGREDIENT) [Suspect]
     Dosage: TOPICAL
     Route: 061
  4. WARFARIN SODIUM [Concomitant]
  5. CARDIAC THERAPY [Concomitant]
  6. CHOLESTEROL [Concomitant]

REACTIONS (5)
  - ACNE [None]
  - APPLICATION SITE REACTION [None]
  - ERYTHEMA [None]
  - LIP HAEMORRHAGE [None]
  - SKIN CANCER [None]
